FAERS Safety Report 7559629-4 (Version None)
Quarter: 2011Q2

REPORT INFORMATION
  Report Type: 
  Country: None (occurrence: None)
  Receive Date: 20110617
  Receipt Date: 20110617
  Transmission Date: 20111010
  Serious: Yes (Other)
  Sender: FDA-Public Use
  Company Number: None

PATIENT
  Age: 28 Year
  Sex: Male
  Weight: 87 kg

DRUGS (1)
  1. CETIRIZINE HCL [Suspect]
     Indication: RHINITIS ALLERGIC
     Dosage: 10MG TDS PO
     Route: 048
     Dates: start: 20110614, end: 20110615

REACTIONS (1)
  - TESTICULAR PAIN [None]
